FAERS Safety Report 6338504-7 (Version None)
Quarter: 2009Q3

REPORT INFORMATION
  Report Type: 
  Country: None (occurrence: None)
  Receive Date: 20090901
  Receipt Date: 20090824
  Transmission Date: 20100115
  Serious: Yes (Death)
  Sender: FDA-Public Use
  Company Number: 2009US003282

PATIENT
  Age: 17 Year
  Sex: Male

DRUGS (4)
  1. PROGRAF [Suspect]
     Indication: RENAL TRANSPLANT
     Dosage: 6 MG, UID/QD, ORAL
     Route: 048
     Dates: start: 20080101
  2. PREDNISOLONE [Concomitant]
  3. MYCOPHENOLATE MOFETIL [Concomitant]
  4. CALCIUM (ASCORBIC ACID) [Concomitant]

REACTIONS (2)
  - PNEUMONIA PRIMARY ATYPICAL [None]
  - RESPIRATORY FAILURE [None]
